FAERS Safety Report 13954230 (Version 1)
Quarter: 2017Q3

REPORT INFORMATION
  Report Type: Spontaneous
  Country: DK (occurrence: DK)
  Receive Date: 20170911
  Receipt Date: 20170911
  Transmission Date: 20171128
  Serious: Yes (Other)
  Sender: FDA-Public Use
  Company Number: DK-AMGEN-DNKSP2017134790

PATIENT
  Age: 78 Year
  Sex: Male

DRUGS (16)
  1. XARELTO [Concomitant]
     Active Substance: RIVAROXABAN
     Dosage: UNK
     Dates: start: 2016, end: 2017
  2. FURIX [Concomitant]
     Active Substance: FUROSEMIDE
     Dates: start: 2017
  3. PROLIA [Suspect]
     Active Substance: DENOSUMAB
     Indication: OSTEOPOROSIS
     Dosage: 60 MG, Q6MO
     Route: 058
     Dates: start: 20130917, end: 20150409
  4. AMLODIPIN TEVA [Concomitant]
     Active Substance: AMLODIPINE BESYLATE
     Dosage: UNK
     Dates: start: 2015
  5. DIGOXIN. [Concomitant]
     Active Substance: DIGOXIN
     Dates: start: 2016
  6. CLEMASTINE [Concomitant]
     Active Substance: CLEMASTINE
     Dosage: UNK
     Dates: start: 2016
  7. GLUCOSAMIN [Concomitant]
     Dosage: UNK
     Dates: start: 2015
  8. RAMIPRIL HYDROCHLORTHIAZIDE 1A PHARMA GMBH [Concomitant]
     Dosage: UNK
     Dates: start: 2016
  9. ELIQUIS [Concomitant]
     Active Substance: APIXABAN
     Dosage: UNK
     Dates: start: 2017
  10. ALFUZOSIN HCL ORIFARM [Concomitant]
     Dosage: UNK
     Dates: start: 2016
  11. BETMIGA [Concomitant]
     Active Substance: MIRABEGRON
     Dosage: UNK
     Dates: start: 2016
  12. XGEVA [Suspect]
     Active Substance: DENOSUMAB
     Indication: OSTEOPOROSIS
     Dosage: 120 MG, Q4WK
     Route: 058
     Dates: start: 20150409, end: 20161118
  13. HJERTEMAGNYL [Concomitant]
     Active Substance: ASPIRIN\MAGNESIUM OXIDE
     Dosage: UNK
     Dates: start: 2015
  14. METOPROLOLSUCCINAT HEXAL [Concomitant]
     Active Substance: METOPROLOL SUCCINATE
     Dosage: UNK
     Dates: start: 2016
  15. PAMORELIN [Concomitant]
     Active Substance: TRIPTORELIN PAMOATE
     Dosage: UNK
     Dates: start: 2014
  16. UNIKALK SILVER [Concomitant]
     Dosage: UNK
     Dates: start: 2015

REACTIONS (2)
  - Osteonecrosis of jaw [Not Recovered/Not Resolved]
  - Swelling face [Unknown]

NARRATIVE: CASE EVENT DATE: 2016
